FAERS Safety Report 9820945 (Version 2)
Quarter: 2014Q1

REPORT INFORMATION
  Report Type: Spontaneous
  Country: US (occurrence: US)
  Receive Date: 20140116
  Receipt Date: 20140116
  Transmission Date: 20141002
  Serious: No
  Sender: FDA-Public Use
  Company Number: US-MYLANLABS-2013S1023674

PATIENT
  Age: 67 Year
  Sex: Female

DRUGS (10)
  1. VALSARTAN AND HYDROCHLOROTHIAZIDE TABLETS [Suspect]
     Indication: BLOOD PRESSURE INCREASED
     Dosage: 160MG/12.5MG
     Route: 048
     Dates: start: 20121121, end: 20121201
  2. VENTOLIN [Concomitant]
     Indication: ASTHMA
  3. OMEPRAZOLE [Concomitant]
     Indication: GASTROOESOPHAGEAL REFLUX DISEASE
  4. FISH OIL [Concomitant]
  5. GARLIC [Concomitant]
  6. ASPIRIN [Concomitant]
  7. METOPROLOL [Concomitant]
  8. VITAMIN D [Concomitant]
  9. CHLORPHENAMINE [Concomitant]
  10. ADVAIR [Concomitant]

REACTIONS (4)
  - Fatigue [Recovered/Resolved]
  - Myalgia [Recovered/Resolved]
  - Muscle spasms [Recovered/Resolved]
  - Muscular weakness [Recovered/Resolved]
